FAERS Safety Report 25078910 (Version 1)
Quarter: 2025Q1

REPORT INFORMATION
  Report Type: Spontaneous
  Country: US (occurrence: US)
  Receive Date: 20250314
  Receipt Date: 20250314
  Transmission Date: 20250409
  Serious: No
  Sender: ITALFARMACO SPA
  Company Number: US-ITALFARMACO SPA-2172850

PATIENT
  Age: 16 Year
  Sex: Male
  Weight: 56.2 kg

DRUGS (14)
  1. DUVYZAT [Suspect]
     Active Substance: GIVINOSTAT
     Indication: Duchenne muscular dystrophy
     Dates: start: 20241107
  2. VAMOROLONE [Concomitant]
     Active Substance: VAMOROLONE
  3. ADVIL [Concomitant]
     Active Substance: IBUPROFEN
  4. ZOLEDRONIC ACID [Concomitant]
     Active Substance: ZOLEDRONIC ACID
  5. TAMSULOSIN HYDROCHLORIDE [Concomitant]
     Active Substance: TAMSULOSIN HYDROCHLORIDE
  6. VITAMINS [Concomitant]
     Active Substance: VITAMINS
  7. LISINOPRIL [Concomitant]
     Active Substance: LISINOPRIL
  8. LACTOBACILLUS [LACTOBACILLUS ACIDOPHILUS] [Concomitant]
  9. FLUOXETINE [Concomitant]
     Active Substance: FLUOXETINE HYDROCHLORIDE
  10. ESOMEPRAZOLE SODIUM [Concomitant]
     Active Substance: ESOMEPRAZOLE SODIUM
  11. EPLERENONE [Concomitant]
     Active Substance: EPLERENONE
  12. DOCUSATE SODIUM [Concomitant]
     Active Substance: DOCUSATE SODIUM
  13. CASIMERSEN [Concomitant]
     Active Substance: CASIMERSEN
  14. ARIPIPRAZOLE [Concomitant]
     Active Substance: ARIPIPRAZOLE

REACTIONS (1)
  - Myalgia [Recovered/Resolved]
